FAERS Safety Report 6235221-9 (Version None)
Quarter: 2009Q2

REPORT INFORMATION
  Report Type: 
  Country: None (occurrence: None)
  Receive Date: 20090615
  Receipt Date: 20090604
  Transmission Date: 20091009
  Serious: Yes (Hospitalization, Other)
  Sender: FDA-Public Use
  Company Number: PAR_03022_2009

PATIENT
  Age: 47 Year
  Sex: Female

DRUGS (2)
  1. ONDANSETRON HCL [Suspect]
     Indication: NAUSEA
     Dosage: 4 MG 1X; INTRAVENOUS (NOT OTHERWISE SPECIFIED)
     Route: 042
  2. CYCLOPHOSPHAMIDE [Suspect]
     Indication: SYSTEMIC LUPUS ERYTHEMATOSUS
     Dosage: 20 MG/KG

REACTIONS (8)
  - BLOOD PRESSURE INCREASED [None]
  - DYSPNOEA [None]
  - EJECTION FRACTION DECREASED [None]
  - INFUSION RELATED REACTION [None]
  - MUSCLE SPASMS [None]
  - MYOCARDIAL ISCHAEMIA [None]
  - PERICARDIAL EFFUSION [None]
  - VENTRICULAR HYPOKINESIA [None]
